FAERS Safety Report 8747648 (Version 2)
Quarter: 2013Q3

REPORT INFORMATION
  Report Type: Spontaneous
  Country: US (occurrence: US)
  Receive Date: 20120827
  Receipt Date: 20130703
  Transmission Date: 20140515
  Serious: Yes (Hospitalization, Disabling, Other)
  Sender: FDA-Public Use
  Company Number: US-009507513-1208USA008460

PATIENT
  Sex: Female
  Weight: 124.72 kg

DRUGS (1)
  1. NUVARING [Suspect]
     Indication: CONTRACEPTION
     Dosage: UNK
     Route: 067
     Dates: start: 2006, end: 2010

REACTIONS (13)
  - Abortion spontaneous [Unknown]
  - Cerebral venous thrombosis [Unknown]
  - Deep vein thrombosis [Unknown]
  - Migraine [Unknown]
  - Infection [Unknown]
  - Gastric bypass [Unknown]
  - Gallbladder disorder [Unknown]
  - Injury [Unknown]
  - Depression [Unknown]
  - Unintended pregnancy [Recovered/Resolved]
  - Thrombosis [Unknown]
  - General symptom [Unknown]
  - Pain [Unknown]
